FAERS Safety Report 14410598 (Version 3)
Quarter: 2018Q2

REPORT INFORMATION
  Report Type: Spontaneous
  Country: DK (occurrence: DK)
  Receive Date: 20180119
  Receipt Date: 20180423
  Transmission Date: 20180711
  Serious: Yes (Hospitalization, Other)
  Sender: FDA-Public Use
  Company Number: PHHY2018DK004283

PATIENT
  Age: 43 Year
  Sex: Female

DRUGS (3)
  1. RIVAROXABAN [Interacting]
     Active Substance: RIVAROXABAN
     Indication: ANTICOAGULANT THERAPY
  2. RIVAROXABAN [Interacting]
     Active Substance: RIVAROXABAN
     Indication: THROMBOSIS
     Dosage: 20 MG, QD
     Route: 048
  3. LEVETIRACETAM. [Suspect]
     Active Substance: LEVETIRACETAM
     Indication: EPILEPSY
     Dosage: 1500 MG, BID
     Route: 065

REACTIONS (5)
  - Vertigo [Unknown]
  - Drug level decreased [Unknown]
  - Drug interaction [Unknown]
  - Hemiparesis [Unknown]
  - Drug ineffective [Unknown]
